FAERS Safety Report 13730123 (Version 2)
Quarter: 2017Q3

REPORT INFORMATION
  Report Type: Spontaneous
  Country: US (occurrence: US)
  Receive Date: 20170707
  Receipt Date: 20170922
  Transmission Date: 20171127
  Serious: Yes (Death, Hospitalization)
  Sender: FDA-Public Use
  Company Number: US-JNJFOC-20170518871

PATIENT
  Age: 86 Year
  Sex: Female

DRUGS (8)
  1. XARELTO [Suspect]
     Active Substance: RIVAROXABAN
     Indication: DEEP VEIN THROMBOSIS
     Dosage: VARYING DOSE OF 15MG AND 20MG
     Route: 048
     Dates: start: 20130916, end: 201502
  2. XARELTO [Suspect]
     Active Substance: RIVAROXABAN
     Indication: ATRIAL FIBRILLATION
     Dosage: VARYING DOSE OF 15MG AND 20MG
     Route: 048
     Dates: start: 2015, end: 20150619
  3. XARELTO [Suspect]
     Active Substance: RIVAROXABAN
     Indication: DEEP VEIN THROMBOSIS
     Dosage: VARYING DOSE OF 15MG AND 20MG
     Route: 048
     Dates: start: 2015, end: 20150619
  4. XARELTO [Suspect]
     Active Substance: RIVAROXABAN
     Indication: ATRIAL FIBRILLATION
     Dosage: VARYING DOSE OF 15MG AND 20MG
     Route: 048
     Dates: start: 20130916, end: 201502
  5. XARELTO [Suspect]
     Active Substance: RIVAROXABAN
     Indication: CEREBROVASCULAR ACCIDENT PROPHYLAXIS
     Dosage: VARYING DOSE OF 15MG AND 20MG
     Route: 048
     Dates: start: 2015, end: 20150619
  6. XARELTO [Suspect]
     Active Substance: RIVAROXABAN
     Indication: THROMBOSIS PROPHYLAXIS
     Dosage: VARYING DOSE OF 15MG AND 20MG
     Route: 048
     Dates: start: 2015, end: 20150619
  7. XARELTO [Suspect]
     Active Substance: RIVAROXABAN
     Indication: THROMBOSIS PROPHYLAXIS
     Dosage: VARYING DOSE OF 15MG AND 20MG
     Route: 048
     Dates: start: 20130916, end: 201502
  8. XARELTO [Suspect]
     Active Substance: RIVAROXABAN
     Indication: CEREBROVASCULAR ACCIDENT PROPHYLAXIS
     Dosage: VARYING DOSE OF 15MG AND 20MG
     Route: 048
     Dates: start: 20130916, end: 201502

REACTIONS (2)
  - Gastrointestinal haemorrhage [Recovering/Resolving]
  - Internal haemorrhage [Unknown]

NARRATIVE: CASE EVENT DATE: 20150227
